FAERS Safety Report 10302841 (Version 3)
Quarter: 2014Q4

REPORT INFORMATION
  Report Type: Spontaneous
  Country: GB (occurrence: GB)
  Receive Date: 20140714
  Receipt Date: 20141105
  Transmission Date: 20150528
  Serious: Yes (Death, Other)
  Sender: FDA-Public Use
  Company Number: GB-TEVA-493140ISR

PATIENT
  Age: 36 Year
  Sex: Male

DRUGS (8)
  1. WARFARIN [Concomitant]
     Active Substance: WARFARIN
     Dates: end: 20120108
  2. SIMVASTATIN. [Suspect]
     Active Substance: SIMVASTATIN
     Route: 048
  3. ARIPIPRAZOLE. [Suspect]
     Active Substance: ARIPIPRAZOLE
     Indication: SCHIZOPHRENIA
     Route: 048
  4. SODIUM VALPROATE [Concomitant]
     Active Substance: VALPROATE SODIUM
  5. FOLIC ACID. [Concomitant]
     Active Substance: FOLIC ACID
  6. CLONAZEPAM. [Concomitant]
     Active Substance: CLONAZEPAM
     Dates: end: 20120108
  7. CLOZAPINE. [Suspect]
     Active Substance: CLOZAPINE
     Indication: SCHIZOPHRENIA
     Route: 048
     Dates: end: 20120109
  8. OMEPRAZOLE. [Concomitant]
     Active Substance: OMEPRAZOLE
     Route: 042
     Dates: end: 20120124

REACTIONS (23)
  - Haemorrhage [Not Recovered/Not Resolved]
  - Liver injury [Not Recovered/Not Resolved]
  - Anaemia [Unknown]
  - Renal disorder [Not Recovered/Not Resolved]
  - Renal impairment [Unknown]
  - Arteriosclerosis [Not Recovered/Not Resolved]
  - Hepatomegaly [Not Recovered/Not Resolved]
  - Generalised oedema [Not Recovered/Not Resolved]
  - Circulatory collapse [Unknown]
  - Peritonitis [Not Recovered/Not Resolved]
  - Sepsis [Not Recovered/Not Resolved]
  - Neuroleptic malignant syndrome [Fatal]
  - Pulmonary oedema [Not Recovered/Not Resolved]
  - Hepatic function abnormal [Unknown]
  - Multi-organ failure [Not Recovered/Not Resolved]
  - Otitis externa [Not Recovered/Not Resolved]
  - Hyperosmolar state [Unknown]
  - Obesity [Unknown]
  - Blood creatine phosphokinase increased [Unknown]
  - Diabetes mellitus [Unknown]
  - Large intestine perforation [Not Recovered/Not Resolved]
  - Splenomegaly [Not Recovered/Not Resolved]
  - Cerebral arteriosclerosis [Not Recovered/Not Resolved]

NARRATIVE: CASE EVENT DATE: 20120109
